FAERS Safety Report 7027366-0 (Version None)
Quarter: 2010Q4

REPORT INFORMATION
  Report Type: 
  Country: None (occurrence: None)
  Receive Date: 20101004
  Receipt Date: 20100924
  Transmission Date: 20110411
  Serious: Yes (Other)
  Sender: FDA-Public Use
  Company Number: PHHY2010JP41633

PATIENT
  Age: 75 Year
  Sex: Female

DRUGS (2)
  1. VOLTAREN [Suspect]
     Indication: ARTHRALGIA
     Dosage: 50 MG
     Route: 054
     Dates: start: 20070101
  2. LIPITOR [Concomitant]
     Dosage: 5 MG
     Route: 048
     Dates: start: 20050101

REACTIONS (3)
  - ALTERED STATE OF CONSCIOUSNESS [None]
  - RASH [None]
  - SHOCK [None]
